FAERS Safety Report 10260786 (Version 2)
Quarter: 2014Q3

REPORT INFORMATION
  Report Type: Spontaneous
  Country: GB (occurrence: GB)
  Receive Date: 20140626
  Receipt Date: 20140718
  Transmission Date: 20150326
  Serious: Yes (Death, Other)
  Sender: FDA-Public Use
  Company Number: GB-AMGEN INC.-GBRSP2014046570

PATIENT
  Age: 83 Year
  Sex: Female

DRUGS (1)
  1. PROLIA [Suspect]
     Active Substance: DENOSUMAB
     Indication: OSTEOPOROSIS
     Dosage: UNK
     Route: 065
     Dates: start: 201304

REACTIONS (5)
  - Ophthalmic herpes zoster [Unknown]
  - Rheumatoid arthritis [Unknown]
  - Renal failure chronic [Unknown]
  - Death [Fatal]
  - Sjogren^s syndrome [Unknown]

NARRATIVE: CASE EVENT DATE: 2014
